FAERS Safety Report 23530077 (Version 2)
Quarter: 2024Q1

REPORT INFORMATION
  Report Type: Spontaneous
  Country: RU (occurrence: None)
  Receive Date: 20240216
  Receipt Date: 20240301
  Transmission Date: 20240410
  Serious: Yes (Other)
  Sender: FDA-Public Use
  Company Number: RU-ROCHE-3505675

PATIENT
  Sex: Female

DRUGS (1)
  1. VABYSMO [Suspect]
     Active Substance: FARICIMAB\FARICIMAB-SVOA
     Indication: Macular degeneration
     Dosage: SECOND DOSE ON 08/DEC/2023?THIRD DOSE ON 19/JAN/2024
     Route: 050
     Dates: start: 20231020

REACTIONS (3)
  - Detachment of retinal pigment epithelium [Unknown]
  - Retinal pigment epithelial tear [Unknown]
  - Off label use [Unknown]

NARRATIVE: CASE EVENT DATE: 20231115
